FAERS Safety Report 23830446 (Version 1)
Quarter: 2024Q2

REPORT INFORMATION
  Report Type: Spontaneous
  Country: ZA (occurrence: None)
  Receive Date: 20240508
  Receipt Date: 20240508
  Transmission Date: 20240716
  Serious: Yes (Hospitalization, Other)
  Sender: FDA-Public Use
  Company Number: 2024A104720

PATIENT
  Age: 73 Year
  Sex: Female

DRUGS (10)
  1. DAPAGLIFLOZIN [Suspect]
     Active Substance: DAPAGLIFLOZIN
     Indication: Diabetes mellitus
     Dosage: 10.0MG UNKNOWN
     Route: 048
  2. MIBITEZ [Concomitant]
     Indication: Blood cholesterol
     Dosage: 10.0MG UNKNOWN
     Route: 048
  3. ASPEN COLCHICINE [Concomitant]
     Indication: Gout
     Dosage: 0.5MG UNKNOWN
     Route: 048
  4. EZETIMIBE [Concomitant]
     Active Substance: EZETIMIBE
     Indication: Blood cholesterol
     Dosage: 10.0MG UNKNOWN
     Route: 048
  5. DORMONOCT [Concomitant]
     Active Substance: LOPRAZOLAM
     Indication: Somnolence
     Dosage: 2.0MG UNKNOWN
     Route: 048
  6. ALPRAZOLAM [Concomitant]
     Active Substance: ALPRAZOLAM
     Indication: Anxiety
     Dosage: 0.25MG UNKNOWN
     Route: 048
  7. SPIRACTIN [Concomitant]
     Indication: Hypertension
     Dosage: 25.0MG UNKNOWN
     Route: 048
  8. BISOPROLOL FUMARATE [Concomitant]
     Active Substance: BISOPROLOL FUMARATE
     Indication: Hypertension
     Dosage: 5.0MG UNKNOWN
     Route: 048
  9. VALSARTAN [Concomitant]
     Active Substance: VALSARTAN
     Indication: Hypertension
     Dosage: 80.0MG UNKNOWN
     Route: 048
  10. ASPIRIN [Concomitant]
     Active Substance: ASPIRIN
     Indication: Coagulopathy
     Dosage: 100.0MG UNKNOWN
     Route: 048

REACTIONS (1)
  - Myocardial infarction [Unknown]
